FAERS Safety Report 23736837 (Version 1)
Quarter: 2024Q2

REPORT INFORMATION
  Report Type: Spontaneous
  Country: US (occurrence: US)
  Receive Date: 20240412
  Receipt Date: 20240412
  Transmission Date: 20240715
  Serious: Yes (Other)
  Sender: FDA-Public Use
  Company Number: US-SUN PHARMACEUTICAL INDUSTRIES LTD-2024R1-440642

PATIENT
  Age: 6 Year
  Sex: Female

DRUGS (1)
  1. LANSOPRAZOLE [Suspect]
     Active Substance: LANSOPRAZOLE
     Indication: Gastrointestinal disorder
     Dosage: UNK
     Route: 065

REACTIONS (5)
  - Achlorhydria [Recovering/Resolving]
  - Blood calcium decreased [Recovering/Resolving]
  - Hyperparathyroidism [Recovering/Resolving]
  - Hypergastrinaemia [Recovering/Resolving]
  - Parathyroid hyperplasia [Recovering/Resolving]
